FAERS Safety Report 13771141 (Version 5)
Quarter: 2018Q1

REPORT INFORMATION
  Report Type: Spontaneous
  Country: JP (occurrence: JP)
  Receive Date: 20170720
  Receipt Date: 20180306
  Transmission Date: 20180508
  Serious: No
  Sender: FDA-Public Use
  Company Number: JP-009507513-1707JPN000341J

PATIENT
  Age: 71 Year
  Sex: Male
  Weight: 42 kg

DRUGS (3)
  1. OXYCODONE [Suspect]
     Active Substance: OXYCODONE
     Indication: SQUAMOUS CELL CARCINOMA OF LUNG
     Dosage: 15 MG, BID
     Route: 048
     Dates: start: 20170706
  2. KEYTRUDA [Suspect]
     Active Substance: PEMBROLIZUMAB
     Indication: SQUAMOUS CELL CARCINOMA OF LUNG
     Dosage: 200 MG, Q3W
     Route: 041
     Dates: start: 20170612, end: 20170612
  3. TRAMAL [Concomitant]
     Active Substance: TRAMADOL
     Indication: SQUAMOUS CELL CARCINOMA OF LUNG
     Dosage: 50 MG, QID
     Route: 048
     Dates: end: 20170705

REACTIONS (5)
  - Constipation [Unknown]
  - Nausea [Unknown]
  - Asthenia [Recovered/Resolved]
  - C-reactive protein increased [Not Recovered/Not Resolved]
  - Muscle spasms [Recovered/Resolved]

NARRATIVE: CASE EVENT DATE: 201706
